FAERS Safety Report 23083578 (Version 3)
Quarter: 2023Q4

REPORT INFORMATION
  Report Type: Spontaneous
  Country: US (occurrence: US)
  Receive Date: 20231019
  Receipt Date: 20231211
  Transmission Date: 20240110
  Serious: No
  Sender: FDA-Public Use
  Company Number: US-SA-SAC20231016000343

PATIENT
  Age: 77 Year
  Sex: Female

DRUGS (12)
  1. DUPIXENT [Suspect]
     Active Substance: DUPILUMAB
     Indication: Chronic obstructive pulmonary disease
     Dosage: 600 MG, 1X
     Route: 058
     Dates: start: 20231009, end: 20231009
  2. DILTIAZEM HYDROCHLORIDE [Concomitant]
     Active Substance: DILTIAZEM HYDROCHLORIDE
  3. ELIQUIS [Concomitant]
     Active Substance: APIXABAN
  4. ESCITALOPRAM [Concomitant]
     Active Substance: ESCITALOPRAM OXALATE
  5. LISINOPRIL [Concomitant]
     Active Substance: LISINOPRIL
  6. LUBIPROSTONE [Concomitant]
     Active Substance: LUBIPROSTONE
  7. OMEPRAZOLE [Concomitant]
     Active Substance: OMEPRAZOLE
  8. POTASSIUM [Concomitant]
     Active Substance: POTASSIUM
  9. ROSUVASTATIN [Concomitant]
     Active Substance: ROSUVASTATIN
  10. TEMAZEPAM [Concomitant]
     Active Substance: TEMAZEPAM
  11. TORSEMIDE [Concomitant]
     Active Substance: TORSEMIDE
  12. VITAMINS NOS [Concomitant]
     Active Substance: VITAMINS

REACTIONS (9)
  - Pyrexia [Unknown]
  - Sleep disorder due to a general medical condition [Unknown]
  - Dyspnoea [Unknown]
  - Cough [Unknown]
  - Throat clearing [Unknown]
  - Pain [Unknown]
  - Decreased appetite [Unknown]
  - Pain in extremity [Unknown]
  - Product use in unapproved indication [Unknown]

NARRATIVE: CASE EVENT DATE: 20231001
